FAERS Safety Report 8563871-3 (Version None)
Quarter: 2012Q3

REPORT INFORMATION
  Report Type: 
  Country: None (occurrence: None)
  Receive Date: 20120727
  Receipt Date: 20120727
  Transmission Date: 20120928
  Serious: Yes (Other)
  Sender: FDA-Public Use
  Company Number: None

PATIENT
  Age: 26 Year
  Sex: Female
  Weight: 52.1637 kg

DRUGS (1)
  1. MIRENA [Suspect]
     Indication: CONTRACEPTION
     Dosage: INTRA-UTERI
     Route: 015
     Dates: start: 20110624, end: 20120106

REACTIONS (4)
  - FEELING ABNORMAL [None]
  - ACNE [None]
  - ANXIETY [None]
  - IRRITABILITY [None]
